FAERS Safety Report 10085399 (Version 1)
Quarter: 2014Q2

REPORT INFORMATION
  Report Type: Spontaneous
  Country: HR (occurrence: HR)
  Receive Date: 20140418
  Receipt Date: 20140418
  Transmission Date: 20141212
  Serious: Yes (Other)
  Sender: FDA-Public Use
  Company Number: PHHY2014HR042646

PATIENT
  Age: 76 Year
  Sex: Female

DRUGS (11)
  1. BYOL COR [Suspect]
     Indication: ATRIAL FIBRILLATION
     Dosage: 1.25 MG, QD
     Route: 048
     Dates: start: 20140306, end: 20140306
  2. EUTHYROX [Concomitant]
     Indication: HYPOTHYROIDISM
     Dosage: 75 UG, UNK
     Route: 048
  3. DIOVAN [Concomitant]
     Indication: ESSENTIAL HYPERTENSION
     Dosage: 80 MG, UNK
     Route: 048
  4. RYTMONORM [Concomitant]
     Indication: ESSENTIAL HYPERTENSION
     Dosage: 150 MG, BID
     Route: 048
  5. FLIXOTIDE [Concomitant]
     Indication: ASTHMA
     Route: 048
  6. VENTOLIN [Concomitant]
     Indication: ASTHMA
     Route: 048
  7. HYGROTON [Concomitant]
     Dosage: 25 MG, UNK
     Route: 048
  8. MARTEFARIN [Concomitant]
     Dosage: 3 MG, UNK
     Route: 048
  9. NEBILET [Concomitant]
     Dosage: 5 MG, UNK
     Route: 048
  10. LIPEX [Concomitant]
     Dosage: 20 MG, QD
     Route: 048
  11. LACIPIL [Concomitant]
     Dosage: 4 MG, UNK
     Route: 048

REACTIONS (2)
  - Tongue oedema [Recovered/Resolved]
  - Dysphagia [Recovered/Resolved]
